FAERS Safety Report 7704497-0 (Version None)
Quarter: 2011Q3

REPORT INFORMATION
  Report Type: 
  Country: None (occurrence: None)
  Receive Date: 20110823
  Receipt Date: 20110810
  Transmission Date: 20111222
  Serious: Yes (Hospitalization)
  Sender: FDA-Public Use
  Company Number: US-ELI_LILLY_AND_COMPANY-US201108005342

PATIENT
  Sex: Female

DRUGS (2)
  1. HUMULIN N [Suspect]
     Indication: TYPE 2 DIABETES MELLITUS
     Dosage: 10 U, EACH MORNING
     Dates: start: 20101201
  2. HUMULIN N [Suspect]
     Dosage: 10 U, EACH MORNING
     Dates: start: 20101201

REACTIONS (3)
  - INCORRECT DOSE ADMINISTERED [None]
  - BLOOD GLUCOSE INCREASED [None]
  - FLUID RETENTION [None]
